FAERS Safety Report 8136781-3 (Version None)
Quarter: 2012Q1

REPORT INFORMATION
  Report Type: 
  Country: None (occurrence: None)
  Receive Date: 20120214
  Receipt Date: 20120208
  Transmission Date: 20120608
  Serious: Yes (Other)
  Sender: FDA-Public Use
  Company Number: FI-PFIZER INC-2011313641

PATIENT
  Age: 96 Year
  Sex: Female

DRUGS (11)
  1. LYRICA [Suspect]
     Dosage: 75 MG, 1X/DAY
     Route: 048
     Dates: start: 20111210, end: 20111215
  2. BUPRENORPHINE [Concomitant]
     Indication: PAIN
     Dosage: 15 MIKROG/H
     Route: 062
  3. OMEPRAZOLE [Concomitant]
     Indication: PROPHYLAXIS
     Dosage: 20 MG, 1X/DAY
     Route: 048
  4. PARA-TABS [Concomitant]
     Indication: PAIN
     Dosage: 500 MG, 3X/DAY
     Route: 048
  5. LYRICA [Suspect]
     Dosage: 25 MG, 1X/DAY
     Route: 048
     Dates: start: 20111208, end: 20111209
  6. FUROSEMIDE [Concomitant]
     Indication: CARDIAC FAILURE
     Dosage: 40 MG, 1X/DAY
     Route: 048
  7. MEDROL [Concomitant]
     Indication: RHEUMATOID ARTHRITIS
     Dosage: 8 MG, 1X/DAY
     Route: 048
  8. LEVOLAC [Concomitant]
     Indication: CONSTIPATION
     Dosage: 20 ML 1X/DAY (670 MG/ML)
     Route: 048
  9. LYRICA [Suspect]
     Indication: NEURALGIA
     Dosage: 25 MG, 1X/DAY, OVERNIGHT
     Route: 048
     Dates: start: 20110915, end: 20110921
  10. EMCONCOR CHF [Concomitant]
     Indication: CARDIAC FAILURE
     Dosage: 1.25 MG, 1X/DAY
     Route: 048
  11. MACROGOL [Concomitant]
     Indication: CONSTIPATION
     Dosage: ONE DOSE ONCE DAILY
     Route: 048

REACTIONS (19)
  - C-REACTIVE PROTEIN INCREASED [None]
  - EYE INFECTION [None]
  - SPEECH DISORDER [None]
  - PYREXIA [None]
  - PULMONARY CONGESTION [None]
  - RALES [None]
  - HYPERTENSION [None]
  - INCREASED UPPER AIRWAY SECRETION [None]
  - DISORIENTATION [None]
  - CONFUSIONAL STATE [None]
  - OCULAR HYPERAEMIA [None]
  - MEMORY IMPAIRMENT [None]
  - FATIGUE [None]
  - BLISTER [None]
  - STRIDOR [None]
  - HEART RATE IRREGULAR [None]
  - PERIPHERAL COLDNESS [None]
  - DYSPNOEA [None]
  - SWELLING [None]
